FAERS Safety Report 7083351-4 (Version None)
Quarter: 2010Q4

REPORT INFORMATION
  Report Type: 
  Country: None (occurrence: None)
  Receive Date: 20101027
  Receipt Date: 20101012
  Transmission Date: 20110411
  Serious: Yes (Death)
  Sender: FDA-Public Use
  Company Number: 1000016295

PATIENT
  Age: 69 Year
  Sex: Female
  Weight: 60 kg

DRUGS (5)
  1. MEMANTINE HCL [Suspect]
     Indication: DEMENTIA ALZHEIMER'S TYPE
     Dosage: 20 MG (10 MG,2 IN 1 D),ORAL
     Route: 048
     Dates: start: 20090804, end: 20090901
  2. INSULIN (INSULIN) (INSULIN) [Concomitant]
  3. ACETYLSALICYLIC ACID (ACETYLSALICYLIC ACID) (TABLETS) (ACETYLSALICYLIC [Concomitant]
  4. NICERGOLINE (NICERGOLINE) (TABLETS) (NICERGOLINE) [Concomitant]
  5. LOVASTATIN (LOVASTATIN) (TABLETS) (LOVASTATIN) [Concomitant]

REACTIONS (1)
  - DEATH [None]
